FAERS Safety Report 4969886-6 (Version None)
Quarter: 2006Q1

REPORT INFORMATION
  Report Type: 
  Country: None (occurrence: None)
  Receive Date: 20060202
  Receipt Date: 20050714
  Transmission Date: 20060701
  Serious: Yes (Other)
  Sender: FDA-Public Use
  Company Number: US-2005-006571

PATIENT
  Age: 30 Year
  Sex: Female
  Weight: 66.7 kg

DRUGS (4)
  1. MIRENA [Suspect]
     Indication: CONTRACEPTION
     Dosage: 20 UG/DAY, CONT, INTRA-UTERINE
     Route: 015
     Dates: start: 20041117, end: 20050420
  2. PRENATAL VITAMINS (VITAMIN D NOS, RETINOL, NICOTINIC ACID, MINERALS NO [Concomitant]
  3. FENUGREEK (TRIGONELLA FOENUM GRAECUM) [Concomitant]
  4. CALTRATE + D [Concomitant]

REACTIONS (2)
  - LACTATION DISORDER [None]
  - UTERINE PERFORATION [None]
